FAERS Safety Report 5408074-6 (Version None)
Quarter: 2007Q3

REPORT INFORMATION
  Report Type: 
  Country: None (occurrence: None)
  Receive Date: 20070808
  Receipt Date: 20070731
  Transmission Date: 20080115
  Serious: Yes (Other)
  Sender: FDA-Public Use
  Company Number: PHBS2007FR12778

PATIENT
  Sex: Male
  Weight: 1.91 kg

DRUGS (4)
  1. TAREG [Suspect]
     Route: 064
  2. LOXEN [Concomitant]
     Route: 064
  3. TRANDATE [Concomitant]
     Route: 064
  4. ALDOMET [Concomitant]
     Route: 064

REACTIONS (3)
  - DRUG EXPOSURE DURING PREGNANCY [None]
  - HYPOGLYCAEMIA NEONATAL [None]
  - PREMATURE BABY [None]
